FAERS Safety Report 22116470 (Version 6)
Quarter: 2024Q2

REPORT INFORMATION
  Report Type: Spontaneous
  Country: CH (occurrence: CH)
  Receive Date: 20230320
  Receipt Date: 20240614
  Transmission Date: 20240715
  Serious: Yes (Death, Hospitalization, Other)
  Sender: FDA-Public Use
  Company Number: CH-OTSUKA-2023_005293

PATIENT
  Age: 63 Year
  Sex: Female
  Weight: 44 kg

DRUGS (19)
  1. SAMSCA [Suspect]
     Active Substance: TOLVAPTAN
     Indication: Hyponatraemia
     Dosage: 15 MG, QD
     Route: 048
     Dates: end: 20200909
  2. SAMSCA [Suspect]
     Active Substance: TOLVAPTAN
     Indication: Inappropriate antidiuretic hormone secretion
     Dosage: 30 MG
     Route: 048
     Dates: end: 20201118
  3. SAMSCA [Suspect]
     Active Substance: TOLVAPTAN
     Dosage: 45 MG
     Route: 048
     Dates: end: 20201213
  4. SAMSCA [Suspect]
     Active Substance: TOLVAPTAN
     Dosage: 60 MG
     Route: 048
  5. SAMSCA [Suspect]
     Active Substance: TOLVAPTAN
     Dosage: 75 MG
     Route: 048
     Dates: end: 20201222
  6. SAMSCA [Suspect]
     Active Substance: TOLVAPTAN
     Dosage: 60 MG
     Route: 048
     Dates: end: 20201228
  7. SAMSCA [Suspect]
     Active Substance: TOLVAPTAN
     Dosage: 30 MG
     Route: 048
     Dates: end: 20201228
  8. SAMSCA [Suspect]
     Active Substance: TOLVAPTAN
     Dosage: 90 MG
     Route: 048
     Dates: end: 20210104
  9. SAMSCA [Suspect]
     Active Substance: TOLVAPTAN
     Dosage: 30 MG
     Route: 048
     Dates: end: 20210104
  10. SAMSCA [Suspect]
     Active Substance: TOLVAPTAN
     Dosage: 105 MG
     Route: 048
     Dates: end: 20210207
  11. SAMSCA [Suspect]
     Active Substance: TOLVAPTAN
     Dosage: 90 MG
     Route: 048
  12. SAMSCA [Suspect]
     Active Substance: TOLVAPTAN
     Dosage: 90 MG
     Route: 048
     Dates: end: 20211212
  13. SAMSCA [Suspect]
     Active Substance: TOLVAPTAN
     Dosage: 120 MG, QD
     Route: 048
  14. ATEZOLIZUMAB [Concomitant]
     Active Substance: ATEZOLIZUMAB
     Indication: Palliative care
     Dosage: UNK
     Route: 065
     Dates: start: 20201118
  15. ATEZOLIZUMAB [Concomitant]
     Active Substance: ATEZOLIZUMAB
     Dosage: UNK
     Route: 065
     Dates: start: 20200821, end: 20201030
  16. CISPLATIN\ETOPOSIDE [Concomitant]
     Active Substance: CISPLATIN\ETOPOSIDE
     Indication: Chemotherapy
     Dosage: 5 CYCLES
     Route: 065
     Dates: start: 20200120, end: 20200420
  17. CARBOPLATIN;ETOPOSIDE [Concomitant]
     Indication: Chemotherapy
     Dosage: UNK
     Route: 065
     Dates: start: 20200821, end: 20201030
  18. FLUNARIZINE [Concomitant]
     Active Substance: FLUNARIZINE
     Indication: Migraine
     Dosage: UNK
     Route: 065
     Dates: start: 201910
  19. RIZATRIPTAN [Concomitant]
     Active Substance: RIZATRIPTAN
     Indication: Migraine
     Dosage: UNK
     Route: 065
     Dates: start: 201910

REACTIONS (6)
  - Hepatic failure [Fatal]
  - Metastases to liver [Fatal]
  - Small cell lung cancer metastatic [Fatal]
  - Blood antidiuretic hormone increased [Unknown]
  - Drug resistance [Not Recovered/Not Resolved]
  - Overdose [Unknown]

NARRATIVE: CASE EVENT DATE: 20191223
